FAERS Safety Report 7136518-0 (Version None)
Quarter: 2010Q4

REPORT INFORMATION
  Report Type: 
  Country: None (occurrence: None)
  Receive Date: 20101206
  Receipt Date: 20090922
  Transmission Date: 20110411
  Serious: Yes (Death)
  Sender: FDA-Public Use
  Company Number: US-ACTELION-A-NJ2006-13915

PATIENT

DRUGS (2)
  1. TRACLEER [Suspect]
     Indication: PULMONARY ARTERIAL HYPERTENSION
     Dosage: 125 MG, QD
     Route: 048
     Dates: start: 20080425, end: 20090916
  2. TRACLEER [Suspect]
     Dosage: UNK, UNK
     Route: 048
     Dates: start: 20040218, end: 20080424

REACTIONS (7)
  - ALANINE AMINOTRANSFERASE INCREASED [None]
  - ASPARTATE AMINOTRANSFERASE INCREASED [None]
  - BACK PAIN [None]
  - CONDITION AGGRAVATED [None]
  - DEATH [None]
  - HOT FLUSH [None]
  - LIVER FUNCTION TEST ABNORMAL [None]
